FAERS Safety Report 14577697 (Version 1)
Quarter: 2018Q1

REPORT INFORMATION
  Report Type: Spontaneous
  Country: US (occurrence: US)
  Receive Date: 20180226
  Receipt Date: 20180226
  Transmission Date: 20180509
  Serious: Yes (Other)
  Sender: FDA-Public Use
  Company Number: None

PATIENT
  Age: 63 Year
  Sex: Female
  Weight: 76.5 kg

DRUGS (4)
  1. CALCIUM [Concomitant]
     Active Substance: CALCIUM
  2. AZITHROMYCIN ANHYDROUS. [Suspect]
     Active Substance: AZITHROMYCIN ANHYDROUS
     Indication: PNEUMONIA
     Dosage: ?          QUANTITY:6 TABLET(S);?
     Route: 048
     Dates: start: 20171113, end: 20171117
  3. VITAMIN D3 [Concomitant]
     Active Substance: CHOLECALCIFEROL
  4. ANTIHISTIMIN [Concomitant]

REACTIONS (3)
  - Tongue coated [None]
  - Abdominal discomfort [None]
  - Tongue discolouration [None]

NARRATIVE: CASE EVENT DATE: 20171123
